FAERS Safety Report 7351435-9 (Version None)
Quarter: 2011Q1

REPORT INFORMATION
  Report Type: 
  Country: None (occurrence: None)
  Receive Date: 20110304
  Receipt Date: 20101112
  Transmission Date: 20110831
  Serious: Yes (Death)
  Sender: FDA-Public Use
  Company Number: JP-20100043

PATIENT
  Age: 69 Year
  Sex: Male

DRUGS (2)
  1. (ETHANOL ABSOLUTE) [Suspect]
     Dosage: TRANSDERMAL
     Route: 062
  2. (LIPIODOL ULTRA FLUIDE) (ETHIODIZED OIL) [Suspect]
     Dosage: INTRA-ARTERIAL
     Route: 013

REACTIONS (6)
  - SARCOIDOSIS [None]
  - METASTASES TO ADRENALS [None]
  - METASTASES TO LUNG [None]
  - TUMOUR RUPTURE [None]
  - METASTASES TO PERITONEUM [None]
  - NEOPLASM MALIGNANT [None]
